FAERS Safety Report 8950729 (Version 1)
Quarter: 2012Q4

REPORT INFORMATION
  Report Type: Spontaneous
  Country: US (occurrence: None)
  Receive Date: 20121128
  Receipt Date: 20121128
  Transmission Date: 20130627
  Serious: Yes (Other)
  Sender: FDA-Public Use
  Company Number: 2012-01688

PATIENT
  Age: 53 Year

DRUGS (2)
  1. LOSARTAN [Suspect]
     Indication: HYPERTENSION
     Route: 048
     Dates: start: 20121010, end: 20121029
  2. BENDROFLUMETHIAZIDE [Concomitant]

REACTIONS (4)
  - Vision blurred [None]
  - Burning sensation [None]
  - Eye pain [None]
  - Visual impairment [None]
